FAERS Safety Report 11624260 (Version 1)
Quarter: 2015Q4

REPORT INFORMATION
  Report Type: Spontaneous
  Country: ES (occurrence: ES)
  Receive Date: 20151013
  Receipt Date: 20151013
  Transmission Date: 20160304
  Serious: Yes (Other)
  Sender: FDA-Public Use
  Company Number: ES-ACCORD-034277

PATIENT
  Age: 77 Year
  Sex: Male

DRUGS (1)
  1. MITOMYCIN. [Suspect]
     Active Substance: MITOMYCIN
     Indication: TRANSITIONAL CELL CARCINOMA
     Route: 043

REACTIONS (2)
  - Eosinophilic cystitis [Recovered/Resolved]
  - Bladder perforation [Recovered/Resolved]
